FAERS Safety Report 19957427 (Version 1)
Quarter: 2021Q4

REPORT INFORMATION
  Report Type: Spontaneous
  Country: IT (occurrence: IT)
  Receive Date: 20211014
  Receipt Date: 20211014
  Transmission Date: 20220303
  Serious: Yes (Hospitalization, Other)
  Sender: FDA-Public Use
  Company Number: IT-ROCHE-2923098

PATIENT
  Age: 62 Year
  Sex: Female

DRUGS (2)
  1. ALECTINIB [Suspect]
     Active Substance: ALECTINIB
     Indication: Product used for unknown indication
     Dosage: 4 CP TWICE A DAY
     Route: 065
     Dates: start: 20210723
  2. ALECTINIB [Suspect]
     Active Substance: ALECTINIB
     Route: 065

REACTIONS (6)
  - Blood creatinine increased [Unknown]
  - Acute kidney injury [Unknown]
  - Anaemia [Unknown]
  - Oedema peripheral [Unknown]
  - Respiratory failure [Unknown]
  - Weight decreased [Unknown]

NARRATIVE: CASE EVENT DATE: 20210913
